FAERS Safety Report 20026512 (Version 2)
Quarter: 2022Q3

REPORT INFORMATION
  Report Type: Spontaneous
  Country: FR (occurrence: FR)
  Receive Date: 20211102
  Receipt Date: 20220805
  Transmission Date: 20221027
  Serious: Yes (Other)
  Sender: FDA-Public Use
  Company Number: FR-KYOWAKIRIN-2021BKK018242

PATIENT

DRUGS (1)
  1. POTELIGEO [Suspect]
     Active Substance: MOGAMULIZUMAB-KPKC
     Indication: Cutaneous T-cell lymphoma stage IV
     Dosage: UNK
     Route: 065

REACTIONS (3)
  - Cutaneous T-cell lymphoma recurrent [Unknown]
  - Alopecia totalis [Recovered/Resolved]
  - Therapy partial responder [Unknown]
